FAERS Safety Report 24885082 (Version 3)
Quarter: 2025Q1

REPORT INFORMATION
  Report Type: Spontaneous
  Country: ES (occurrence: ES)
  Receive Date: 20250124
  Receipt Date: 20250306
  Transmission Date: 20250409
  Serious: No
  Sender: PFIZER
  Company Number: ES-PFIZER INC-PV202500008790

PATIENT
  Age: 8 Year
  Sex: Male

DRUGS (1)
  1. SOMATROPIN [Suspect]
     Active Substance: SOMATROPIN
     Indication: Growth hormone deficiency
     Route: 058
     Dates: start: 20250102

REACTIONS (3)
  - Drug dose omission by device [Unknown]
  - Device use confusion [Unknown]
  - Product communication issue [Unknown]

NARRATIVE: CASE EVENT DATE: 20250116
